FAERS Safety Report 7681686-5 (Version None)
Quarter: 2011Q3

REPORT INFORMATION
  Report Type: 
  Country: None (occurrence: None)
  Receive Date: 20110812
  Receipt Date: 20110802
  Transmission Date: 20111222
  Serious: Yes (Hospitalization)
  Sender: FDA-Public Use
  Company Number: BR-ABBOTT-11P-020-0844123-00

PATIENT

DRUGS (2)
  1. AMLODIPINE BESYLATE [Suspect]
     Indication: PNEUMONIA
  2. CEFTRIAXONE [Suspect]
     Indication: PNEUMONIA

REACTIONS (1)
  - RESPIRATORY RATE INCREASED [None]
